FAERS Safety Report 23405575 (Version 2)
Quarter: 2024Q3

REPORT INFORMATION
  Report Type: Spontaneous
  Country: US (occurrence: US)
  Receive Date: 20240116
  Receipt Date: 20240813
  Transmission Date: 20241017
  Serious: No
  Sender: SPECGX
  Company Number: US-SPECGX-T202301780

PATIENT
  Sex: Male

DRUGS (3)
  1. HYDROMORPHONE [Suspect]
     Active Substance: HYDROMORPHONE
     Indication: Pain
     Dosage: 2 MILLIGRAM
     Route: 065
  2. OXYCODONE [Suspect]
     Active Substance: OXYCODONE
     Indication: Product used for unknown indication
     Dosage: 80-100 MGS
     Route: 065
  3. DILAUDID [Suspect]
     Active Substance: HYDROMORPHONE HYDROCHLORIDE
     Indication: Pain
     Dosage: 14 MILLIGRAM
     Route: 065

REACTIONS (2)
  - Illness [Unknown]
  - Drug ineffective [Unknown]
